FAERS Safety Report 4432685-8 (Version None)
Quarter: 2004Q3

REPORT INFORMATION
  Report Type: 
  Country: None (occurrence: None)
  Receive Date: 20040820
  Receipt Date: 20040729
  Transmission Date: 20050211
  Serious: Yes (Hospitalization, Other)
  Sender: FDA-Public Use
  Company Number: USA040464581

PATIENT
  Age: 89 Year
  Sex: Female

DRUGS (6)
  1. FORTEO [Suspect]
     Dates: start: 20021201
  2. ULTRAM [Concomitant]
  3. ELAVIL [Concomitant]
  4. COUMADIN [Concomitant]
  5. CITRICAL (CALCIUM CARBONATE) [Concomitant]
  6. XANAX (ALPRAZOLAM DUM) [Concomitant]

REACTIONS (5)
  - FALL [None]
  - PAIN IN EXTREMITY [None]
  - PHARMACEUTICAL PRODUCT COMPLAINT [None]
  - SPINAL COMPRESSION FRACTURE [None]
  - THINKING ABNORMAL [None]
